FAERS Safety Report 11353025 (Version 1)
Quarter: 2015Q3

REPORT INFORMATION
  Report Type: Spontaneous
  Country: US (occurrence: US)
  Receive Date: 20150807
  Receipt Date: 20150807
  Transmission Date: 20151125
  Serious: No
  Sender: FDA-Public Use
  Company Number: US-JNJFOC-20141208983

PATIENT
  Age: 68 Year
  Sex: Female
  Weight: 77.11 kg

DRUGS (7)
  1. VITAMIN C [Concomitant]
     Active Substance: ASCORBIC ACID
     Dosage: INTERVAL - YEARS
     Route: 065
  2. MENS ROGAINE EXTRA STRENGTH [Suspect]
     Active Substance: MINOXIDIL
     Indication: ALOPECIA
     Dosage: DOSAGE - 6 PUMPS
     Route: 061
  3. VITAMIN E (TOCOPHERYL ACETATE) [Concomitant]
     Dosage: INTERVAL - YEARS
     Route: 065
  4. LIPITOR [Concomitant]
     Active Substance: ATORVASTATIN CALCIUM
     Indication: BLOOD CHOLESTEROL INCREASED
     Dosage: INTERVAL - YEARS
     Route: 065
  5. MENS ROGAINE EXTRA STRENGTH [Suspect]
     Active Substance: MINOXIDIL
     Route: 061
  6. VITAMIN D [Concomitant]
     Active Substance: CHOLECALCIFEROL
     Dosage: INTERVAL - YEARS
     Route: 065
  7. CALCIUM [Concomitant]
     Active Substance: CALCIUM
     Dosage: INTERVAL - YEARS
     Route: 065

REACTIONS (3)
  - Wrong technique in product usage process [Unknown]
  - Wrong patient received medication [Unknown]
  - Skin exfoliation [Not Recovered/Not Resolved]
